FAERS Safety Report 13251590 (Version 4)
Quarter: 2019Q1

REPORT INFORMATION
  Report Type: Other
  Country: CA (occurrence: CA)
  Receive Date: 20170220
  Receipt Date: 20190313
  Transmission Date: 20190417
  Serious: Yes (Congenital Anomaly, Other)
  Sender: FDA-Public Use
  Company Number: CA-APOTEX-2017AP006777

PATIENT
  Age: 71 Year
  Sex: Female

DRUGS (18)
  1. ARAVA [Suspect]
     Active Substance: LEFLUNOMIDE
     Indication: PRODUCT USED FOR UNKNOWN INDICATION
     Route: 065
  2. METHOTREXATE. [Suspect]
     Active Substance: METHOTREXATE
     Dosage: 25 MG, Q.WK.
     Route: 065
  3. APO-LEFLUNOMIDE [Suspect]
     Active Substance: LEFLUNOMIDE
     Indication: PRODUCT USED FOR UNKNOWN INDICATION
     Dosage: 10 MG, UNK
     Route: 065
  4. HYDROXYCHLOROQUINE [Suspect]
     Active Substance: HYDROXYCHLOROQUINE
     Indication: PRODUCT USED FOR UNKNOWN INDICATION
     Dosage: UNK
     Route: 065
  5. METHOTREXATE. [Suspect]
     Active Substance: METHOTREXATE
     Indication: RHEUMATOID ARTHRITIS
     Dosage: 25 MG, Q.WK.
     Route: 048
  6. XELJANZ [Concomitant]
     Active Substance: TOFACITINIB CITRATE
     Indication: RHEUMATOID ARTHRITIS
     Dosage: 5 MG, BID
     Route: 048
  7. SIMPONI [Suspect]
     Active Substance: GOLIMUMAB
     Indication: RHEUMATOID ARTHRITIS
  8. ACTEMRA [Suspect]
     Active Substance: TOCILIZUMAB
     Indication: RHEUMATOID ARTHRITIS
     Route: 065
  9. METHOTREXATE. [Suspect]
     Active Substance: METHOTREXATE
     Dosage: 22.5 MG, Q.WK.
     Route: 065
  10. METHOTREXATE. [Suspect]
     Active Substance: METHOTREXATE
     Dosage: 25 MG, QD
     Route: 048
  11. ORENCIA [Suspect]
     Active Substance: ABATACEPT
     Indication: RHEUMATOID ARTHRITIS
  12. PHTHALYLSULFATHIAZOLE [Suspect]
     Active Substance: PHTHALYLSULFATHIAZOLE
     Indication: PRODUCT USED FOR UNKNOWN INDICATION
     Route: 065
  13. PLAQUENIL                          /00072602/ [Suspect]
     Active Substance: HYDROXYCHLOROQUINE DIPHOSPHATE
     Indication: PRODUCT USED FOR UNKNOWN INDICATION
     Route: 065
  14. PREDNISONE. [Concomitant]
     Active Substance: PREDNISONE
     Indication: PRODUCT USED FOR UNKNOWN INDICATION
     Dosage: 5 MG, QD
     Route: 048
  15. ORENCIA [Suspect]
     Active Substance: ABATACEPT
     Indication: PRODUCT USED FOR UNKNOWN INDICATION
     Dosage: UNK
     Route: 065
  16. SIMPONI [Suspect]
     Active Substance: GOLIMUMAB
     Indication: PRODUCT USED FOR UNKNOWN INDICATION
     Dosage: UNK
     Route: 058
  17. ENBREL [Suspect]
     Active Substance: ETANERCEPT
     Indication: RHEUMATOID ARTHRITIS
     Route: 065
  18. SULFASALAZINE. [Suspect]
     Active Substance: SULFASALAZINE
     Indication: RHEUMATOID ARTHRITIS
     Dosage: 500 MG, BID
     Route: 065

REACTIONS (15)
  - C-reactive protein abnormal [Not Recovered/Not Resolved]
  - Hepatic enzyme increased [Not Recovered/Not Resolved]
  - Fatigue [Not Recovered/Not Resolved]
  - White blood cell count decreased [Not Recovered/Not Resolved]
  - Joint swelling [Not Recovered/Not Resolved]
  - Rheumatoid arthritis [Not Recovered/Not Resolved]
  - Drug intolerance [Not Recovered/Not Resolved]
  - Liver function test increased [Not Recovered/Not Resolved]
  - Arthralgia [Not Recovered/Not Resolved]
  - Laboratory test abnormal [Not Recovered/Not Resolved]
  - Drug ineffective [Not Recovered/Not Resolved]
  - Musculoskeletal stiffness [Not Recovered/Not Resolved]
  - Contusion [Not Recovered/Not Resolved]
  - Pain [Not Recovered/Not Resolved]
  - Treatment failure [Not Recovered/Not Resolved]
